FAERS Safety Report 16078665 (Version 1)
Quarter: 2019Q1

REPORT INFORMATION
  Report Type: Spontaneous
  Country: US (occurrence: US)
  Receive Date: 20190315
  Receipt Date: 20190315
  Transmission Date: 20190418
  Serious: No
  Sender: FDA-Public Use
  Company Number: US-009507513-1903USA006799

PATIENT
  Age: 45 Year
  Sex: Male

DRUGS (5)
  1. TRULICITY [Concomitant]
     Active Substance: DULAGLUTIDE
  2. METFORMIN [Concomitant]
     Active Substance: METFORMIN HYDROCHLORIDE
  3. LOSARTIN [Concomitant]
     Active Substance: LOSARTAN
  4. STEGLATRO [Suspect]
     Active Substance: ERTUGLIFLOZIN PIDOLATE
     Indication: TYPE 2 DIABETES MELLITUS
     Dosage: 5 MG/ONCE DAILY
     Route: 048
  5. CRESTOR [Concomitant]
     Active Substance: ROSUVASTATIN CALCIUM

REACTIONS (2)
  - Pain of skin [Not Recovered/Not Resolved]
  - Myalgia [Not Recovered/Not Resolved]
